FAERS Safety Report 6983683-1 (Version None)
Quarter: 2010Q3

REPORT INFORMATION
  Report Type: 
  Country: None (occurrence: None)
  Receive Date: 20100914
  Receipt Date: 20090302
  Transmission Date: 20110219
  Serious: No
  Sender: FDA-Public Use
  Company Number: US-WYE-H07079408

PATIENT
  Age: 82 Year
  Sex: Male
  Weight: 93.07 kg

DRUGS (4)
  1. ADVIL LIQUI-GELS [Suspect]
     Indication: BACK PAIN
     Route: 048
     Dates: start: 20081001, end: 20081201
  2. DIOVAN [Concomitant]
  3. ACETYLSALICYLIC ACID [Concomitant]
  4. AMARYL [Concomitant]

REACTIONS (2)
  - CONDITION AGGRAVATED [None]
  - DIABETES MELLITUS [None]
